FAERS Safety Report 11221143 (Version 2)
Quarter: 2015Q3

REPORT INFORMATION
  Report Type: Spontaneous
  Country: GB (occurrence: GB)
  Receive Date: 20150626
  Receipt Date: 20150706
  Transmission Date: 20151125
  Serious: Yes (Death)
  Sender: FDA-Public Use
  Company Number: GB-ROCHE-1599135

PATIENT
  Age: 22 Year
  Sex: Female

DRUGS (1)
  1. SOMATROPIN [Suspect]
     Active Substance: SOMATROPIN
     Indication: GROWTH HORMONE DEFICIENCY
     Route: 065
     Dates: start: 197207, end: 197607

REACTIONS (1)
  - Creutzfeldt-Jakob disease [Fatal]

NARRATIVE: CASE EVENT DATE: 198403
